FAERS Safety Report 7400467-0 (Version None)
Quarter: 2011Q2

REPORT INFORMATION
  Report Type: 
  Country: None (occurrence: None)
  Receive Date: 20110407
  Receipt Date: 20110329
  Transmission Date: 20111010
  Serious: Yes (Other)
  Sender: FDA-Public Use
  Company Number: US-JNJFOC-20110312664

PATIENT
  Age: 13 Year
  Sex: Male
  Weight: 57.15 kg

DRUGS (6)
  1. MUCINEX [Concomitant]
     Indication: COUGH
     Route: 048
  2. MULTI-VITAMINS [Concomitant]
     Indication: ROUTINE HEALTH MAINTENANCE
     Route: 048
  3. ZYRTEC [Suspect]
     Route: 048
  4. AZITHROMYCIN [Concomitant]
     Indication: EAR INFECTION
     Route: 048
  5. VITAMIN D [Concomitant]
     Indication: ROUTINE HEALTH MAINTENANCE
     Route: 048
  6. ZYRTEC [Suspect]
     Indication: MULTIPLE ALLERGIES
     Route: 048

REACTIONS (1)
  - HALLUCINATION [None]
